FAERS Safety Report 8716395 (Version 2)
Quarter: 2013Q4

REPORT INFORMATION
  Report Type: Spontaneous
  Country: US (occurrence: US)
  Receive Date: 20120810
  Receipt Date: 20131101
  Transmission Date: 20140711
  Serious: No
  Sender: FDA-Public Use
  Company Number: US-009507513-1207USA010067

PATIENT
  Age: 48 Year
  Sex: Male

DRUGS (5)
  1. VICTRELIS [Suspect]
     Dosage: 800 MG, TID
     Route: 048
  2. PEGINTRON [Suspect]
  3. PEGASYS [Suspect]
  4. RIBAPAK [Suspect]
     Dosage: 1000/DAY
  5. DIOVAN [Concomitant]

REACTIONS (1)
  - Rash [Unknown]
